FAERS Safety Report 7075429-6 (Version None)
Quarter: 2010Q4

REPORT INFORMATION
  Report Type: 
  Country: None (occurrence: None)
  Receive Date: 20101030
  Receipt Date: 20100904
  Transmission Date: 20110411
  Serious: No
  Sender: FDA-Public Use
  Company Number: US-WYE-H17366610

PATIENT
  Sex: Female
  Weight: 56.75 kg

DRUGS (6)
  1. TYGACIL [Suspect]
     Dosage: 100 MG FREQUENCY NOT SPECIFIED
     Route: 042
  2. OXYBUTYNIN [Concomitant]
  3. ONDANSETRON HYDROCHLORIDE [Concomitant]
  4. ZOLOFT [Concomitant]
  5. LOVENOX [Concomitant]
  6. HYDROMORPHONE HYDROCHLORIDE [Concomitant]

REACTIONS (3)
  - INFUSION SITE ERYTHEMA [None]
  - INFUSION SITE EXTRAVASATION [None]
  - INFUSION SITE SWELLING [None]
